FAERS Safety Report 18247192 (Version 2)
Quarter: 2021Q2

REPORT INFORMATION
  Report Type: Spontaneous
  Country: US (occurrence: US)
  Receive Date: 20200909
  Receipt Date: 20210402
  Transmission Date: 20210717
  Serious: Yes (Other)
  Sender: FDA-Public Use
  Company Number: US-ASTRAZENECA-2020SF11506

PATIENT
  Age: 73 Year
  Sex: Male
  Weight: 81.2 kg

DRUGS (64)
  1. CARVEDILOL. [Concomitant]
     Active Substance: CARVEDILOL
  2. PROTONIX [Suspect]
     Active Substance: PANTOPRAZOLE SODIUM
     Indication: GASTROOESOPHAGEAL REFLUX DISEASE
     Dosage: GENERIC
     Route: 065
     Dates: end: 2020
  3. FUROSEMIDE. [Concomitant]
     Active Substance: FUROSEMIDE
     Indication: HYPERTENSION
     Dates: start: 20161018, end: 20161201
  4. PREDNISONE. [Concomitant]
     Active Substance: PREDNISONE
  5. VENTOLIN HFA [Concomitant]
     Active Substance: ALBUTEROL SULFATE
  6. ZINC SULFATE. [Concomitant]
     Active Substance: ZINC SULFATE
  7. PRILOSEC [Suspect]
     Active Substance: OMEPRAZOLE MAGNESIUM
     Indication: GASTROOESOPHAGEAL REFLUX DISEASE
     Route: 048
     Dates: start: 200307, end: 201712
  8. PRILOSEC OTC [Suspect]
     Active Substance: OMEPRAZOLE MAGNESIUM
     Indication: GASTROOESOPHAGEAL REFLUX DISEASE
     Route: 048
     Dates: start: 2003
  9. PRILOSEC OTC [Suspect]
     Active Substance: OMEPRAZOLE MAGNESIUM
     Indication: GASTROOESOPHAGEAL REFLUX DISEASE
     Route: 048
     Dates: start: 200307, end: 201712
  10. ATORVASTATIN [Concomitant]
     Active Substance: ATORVASTATIN
     Indication: HYPERLIPIDAEMIA
     Dates: start: 20111208, end: 20200428
  11. LEVOFLOXACIN. [Concomitant]
     Active Substance: LEVOFLOXACIN
     Indication: INFECTION
     Dates: start: 20131202, end: 20150129
  12. CEFUROXIME. [Concomitant]
     Active Substance: CEFUROXIME
     Indication: INFECTION
     Dates: start: 20160425, end: 20180710
  13. PREDNISONE. [Concomitant]
     Active Substance: PREDNISONE
  14. METHOTREXATE. [Concomitant]
     Active Substance: METHOTREXATE
  15. FUROSEMIDE. [Concomitant]
     Active Substance: FUROSEMIDE
  16. XANAX [Concomitant]
     Active Substance: ALPRAZOLAM
  17. WARFARIN [Concomitant]
     Active Substance: WARFARIN
  18. PROTONIX [Suspect]
     Active Substance: PANTOPRAZOLE SODIUM
     Indication: GASTROOESOPHAGEAL REFLUX DISEASE
     Route: 065
     Dates: start: 2003, end: 2017
  19. LEVAQUIN [Concomitant]
     Active Substance: LEVOFLOXACIN
     Indication: INFECTION
     Dates: start: 20110106, end: 20110113
  20. METHOTREXATE. [Concomitant]
     Active Substance: METHOTREXATE
     Indication: ARTHRITIS
     Dates: start: 20150426, end: 20200621
  21. PREDNISONE. [Concomitant]
     Active Substance: PREDNISONE
  22. ALPRAZOLAM. [Concomitant]
     Active Substance: ALPRAZOLAM
  23. CARVEDILOL. [Concomitant]
     Active Substance: CARVEDILOL
  24. MELATONIN [Concomitant]
     Active Substance: MELATONIN
  25. VENLAFAXINE [Concomitant]
     Active Substance: VENLAFAXINE HYDROCHLORIDE
  26. PRILOSEC [Suspect]
     Active Substance: OMEPRAZOLE MAGNESIUM
     Indication: GASTROOESOPHAGEAL REFLUX DISEASE
     Route: 048
     Dates: start: 200307, end: 201712
  27. PRILOSEC [Suspect]
     Active Substance: OMEPRAZOLE MAGNESIUM
     Indication: GASTROOESOPHAGEAL REFLUX DISEASE
     Route: 048
     Dates: start: 2003, end: 2017
  28. LIPITOR [Concomitant]
     Active Substance: ATORVASTATIN CALCIUM
     Indication: HYPERLIPIDAEMIA
     Dates: start: 20100720, end: 20111108
  29. TRAMADOL. [Concomitant]
     Active Substance: TRAMADOL
     Indication: PAIN
     Dates: start: 20100727, end: 20200625
  30. HYDRALAZINE [Concomitant]
     Active Substance: HYDRALAZINE HYDROCHLORIDE
     Indication: HYPERTENSION
     Dates: start: 20171009, end: 20200626
  31. FOLIC ACID. [Concomitant]
     Active Substance: FOLIC ACID
  32. SYMBICORT [Concomitant]
     Active Substance: BUDESONIDE\FORMOTEROL FUMARATE DIHYDRATE
  33. JANUMET [Concomitant]
     Active Substance: METFORMIN HYDROCHLORIDE\SITAGLIPTIN PHOSPHATE
  34. ISOSORBIDE. [Concomitant]
     Active Substance: ISOSORBIDE
  35. AMBIEN [Concomitant]
     Active Substance: ZOLPIDEM TARTRATE
  36. ZINC SULFATE. [Concomitant]
     Active Substance: ZINC SULFATE
  37. PRILOSEC [Suspect]
     Active Substance: OMEPRAZOLE MAGNESIUM
     Indication: GASTROOESOPHAGEAL REFLUX DISEASE
     Route: 048
     Dates: start: 2003, end: 2017
  38. PROTONIX [Suspect]
     Active Substance: PANTOPRAZOLE SODIUM
     Indication: GASTROOESOPHAGEAL REFLUX DISEASE
     Dosage: GENERIC
     Route: 065
     Dates: end: 2020
  39. KETOROLAC [Concomitant]
     Active Substance: KETOROLAC TROMETHAMINE
     Indication: PAIN
     Dates: start: 20150826, end: 20150925
  40. LISINOPRIL. [Concomitant]
     Active Substance: LISINOPRIL
     Indication: HYPERTENSION
     Dates: start: 20160425, end: 20161219
  41. LOSARTAN. [Concomitant]
     Active Substance: LOSARTAN
     Indication: HYPERTENSION
     Dates: start: 20170308, end: 20170428
  42. TUMS [Concomitant]
     Active Substance: CALCIUM CARBONATE
  43. CEFDINIR. [Concomitant]
     Active Substance: CEFDINIR
  44. TRAMADOL. [Concomitant]
     Active Substance: TRAMADOL
  45. VENTOLIN [Concomitant]
     Active Substance: ALBUTEROL SULFATE
  46. DOCUSATE [Concomitant]
     Active Substance: DOCUSATE
  47. CIPROFLOXACIN. [Concomitant]
     Active Substance: CIPROFLOXACIN
     Indication: INFECTION
     Dates: start: 20161104, end: 20171110
  48. METFORMIN [Concomitant]
     Active Substance: METFORMIN HYDROCHLORIDE
  49. LINEZOLID. [Concomitant]
     Active Substance: LINEZOLID
  50. VANCOMYCIN [Concomitant]
     Active Substance: VANCOMYCIN
  51. SODIUM CHLORIDE. [Concomitant]
     Active Substance: SODIUM CHLORIDE
  52. OXYCODONE [Concomitant]
     Active Substance: OXYCODONE
  53. ANORO ELLIPTA [Concomitant]
     Active Substance: UMECLIDINIUM BROMIDE\VILANTEROL TRIFENATATE
  54. PRILOSEC OTC [Suspect]
     Active Substance: OMEPRAZOLE MAGNESIUM
     Indication: GASTROOESOPHAGEAL REFLUX DISEASE
     Route: 048
     Dates: start: 2003
  55. PRILOSEC OTC [Suspect]
     Active Substance: OMEPRAZOLE MAGNESIUM
     Indication: GASTROOESOPHAGEAL REFLUX DISEASE
     Route: 048
     Dates: start: 200307, end: 201712
  56. PROTONIX [Suspect]
     Active Substance: PANTOPRAZOLE SODIUM
     Indication: GASTROOESOPHAGEAL REFLUX DISEASE
     Route: 065
     Dates: start: 2003, end: 2017
  57. AVELOX [Concomitant]
     Active Substance: MOXIFLOXACIN HYDROCHLORIDE
     Indication: INFECTION
     Dates: start: 20120420, end: 20120430
  58. AZITHROMYCIN ANHYDROUS. [Concomitant]
     Active Substance: AZITHROMYCIN ANHYDROUS
     Indication: INFECTION
     Dates: start: 20161128, end: 20161228
  59. SERTRALINE [Concomitant]
     Active Substance: SERTRALINE HYDROCHLORIDE
  60. TRAZODONE [Concomitant]
     Active Substance: TRAZODONE HYDROCHLORIDE
  61. ZOLPIDEM [Concomitant]
     Active Substance: ZOLPIDEM TARTRATE
  62. OFLOXACIN. [Concomitant]
     Active Substance: OFLOXACIN
  63. WARFARIN [Concomitant]
     Active Substance: WARFARIN
  64. VENLAFAXINE [Concomitant]
     Active Substance: VENLAFAXINE HYDROCHLORIDE

REACTIONS (5)
  - Renal failure [Unknown]
  - Renal tubular necrosis [Unknown]
  - Acute kidney injury [Not Recovered/Not Resolved]
  - Gastrooesophageal reflux disease [Not Recovered/Not Resolved]
  - Chronic kidney disease [Unknown]

NARRATIVE: CASE EVENT DATE: 2016
